FAERS Safety Report 5051761-2 (Version None)
Quarter: 2006Q3

REPORT INFORMATION
  Report Type: 
  Country: None (occurrence: None)
  Receive Date: 20060711
  Receipt Date: 20060626
  Transmission Date: 20061208
  Serious: Yes (Death, Hospitalization)
  Sender: FDA-Public Use
  Company Number: 2006S1004684

PATIENT
  Age: 24 Year
  Sex: Male
  Weight: 81.1939 kg

DRUGS (1)
  1. FENTANYL TRANSDERMAL SYSTEM [Suspect]
     Dates: start: 20060224, end: 20060225

REACTIONS (4)
  - APALLIC SYNDROME [None]
  - LOSS OF CONSCIOUSNESS [None]
  - OVERDOSE [None]
  - SELF-MEDICATION [None]
